FAERS Safety Report 10253790 (Version 1)
Quarter: 2014Q2

REPORT INFORMATION
  Report Type: Spontaneous
  Country: US (occurrence: US)
  Receive Date: 20140623
  Receipt Date: 20140623
  Transmission Date: 20141212
  Serious: No
  Sender: FDA-Public Use
  Company Number: US-ZOGENIX, INC.-2011ZX000518

PATIENT
  Sex: Female
  Weight: 87.62 kg

DRUGS (8)
  1. SUMAVEL DOSEPRO [Suspect]
     Indication: MIGRAINE
  2. NORTRIPTYLINE [Concomitant]
     Indication: PRODUCT USED FOR UNKNOWN INDICATION
     Route: 048
  3. RELPAX [Concomitant]
     Indication: MIGRAINE
     Route: 048
  4. ESOMEPRAZOLE [Concomitant]
     Indication: PRODUCT USED FOR UNKNOWN INDICATION
  5. ZANTAC [Concomitant]
     Indication: PRODUCT USED FOR UNKNOWN INDICATION
  6. VICODIN [Concomitant]
     Indication: PAIN
  7. FIORICET [Concomitant]
     Indication: PAIN
  8. FIORICET [Concomitant]
     Indication: SKIN DISORDER

REACTIONS (6)
  - Injection site urticaria [Recovered/Resolved]
  - Injection site haemorrhage [Recovered/Resolved]
  - Injection site pain [Recovered/Resolved]
  - Drug ineffective [Recovered/Resolved]
  - Euphoric mood [Recovered/Resolved]
  - Incorrect dose administered by device [Recovered/Resolved]
